FAERS Safety Report 4915896-4 (Version None)
Quarter: 2006Q1

REPORT INFORMATION
  Report Type: 
  Country: None (occurrence: None)
  Receive Date: 20060214
  Receipt Date: 20060201
  Transmission Date: 20060701
  Serious: Yes (Death, Other)
  Sender: FDA-Public Use
  Company Number: 2005107325

PATIENT
  Age: 46 Year
  Sex: Male
  Weight: 87.5442 kg

DRUGS (6)
  1. NEURONTIN [Suspect]
     Indication: BIPOLAR DISORDER
     Dates: start: 20010917
  2. NEURONTIN [Suspect]
     Indication: DEPRESSION
     Dates: start: 20010917
  3. CLONAZEPAM [Concomitant]
  4. CELEBREX [Concomitant]
  5. METHYLPREDNISOLONE [Concomitant]
  6. FLUOXETINE [Concomitant]

REACTIONS (3)
  - COMPLETED SUICIDE [None]
  - DRUG INEFFECTIVE [None]
  - INJURY ASPHYXIATION [None]
